FAERS Safety Report 5003252-2 (Version None)
Quarter: 2006Q2

REPORT INFORMATION
  Report Type: 
  Country: None (occurrence: None)
  Receive Date: 20060502
  Receipt Date: 20060420
  Transmission Date: 20061013
  Serious: Yes (Hospitalization)
  Sender: FDA-Public Use
  Company Number: THYM-10920

PATIENT
  Age: 18 Year
  Sex: Male
  Weight: 55 kg

DRUGS (8)
  1. THYMOGLOBULIN [Suspect]
     Indication: HEART TRANSPLANT
     Dosage: 125 MG QD IV
     Route: 042
     Dates: start: 20060227, end: 20060303
  2. THYMOGLOBULIN [Suspect]
     Indication: HEART TRANSPLANT
     Dosage: 100 MG QD IV
     Route: 042
     Dates: start: 20060304, end: 20060305
  3. THYMOGLOBULIN [Suspect]
     Indication: HEART TRANSPLANT
     Dosage: 50 MG QD IV
     Route: 042
     Dates: start: 20060306, end: 20060308
  4. MYCOPHENOLATE MOFETIL [Concomitant]
  5. DILANTIN [Concomitant]
  6. BLOOD PLATELET [Concomitant]
  7. FRESH FROZEN PLASMA [Concomitant]
  8. RED BLOOD CELLS [Concomitant]

REACTIONS (3)
  - HEART TRANSPLANT REJECTION [None]
  - HEPARIN-INDUCED THROMBOCYTOPENIA [None]
  - LEUKOPENIA [None]
